FAERS Safety Report 13869382 (Version 3)
Quarter: 2017Q3

REPORT INFORMATION
  Report Type: Spontaneous
  Country: IT (occurrence: IT)
  Receive Date: 20170815
  Receipt Date: 20170921
  Transmission Date: 20171127
  Serious: Yes (Hospitalization)
  Sender: FDA-Public Use
  Company Number: IT-CELGENEUS-ITA-20170800151

PATIENT
  Age: 52 Year
  Sex: Male
  Weight: 58 kg

DRUGS (5)
  1. OTEZLA [Suspect]
     Active Substance: APREMILAST
     Indication: PSORIATIC ARTHROPATHY
     Dosage: 4 TABLETS 10 MG +4 TABLETS 20 MG + 19 TABLETS 30 MG
     Route: 048
     Dates: start: 20170612, end: 20170707
  2. LOSARTAN. [Concomitant]
     Active Substance: LOSARTAN
     Indication: HYPERTENSION
     Route: 065
  3. FUMARATE BISOPROLOL [Concomitant]
     Indication: CARDIOMYOPATHY
     Route: 048
  4. OMEPRAZOLE. [Concomitant]
     Active Substance: OMEPRAZOLE
     Indication: PROPHYLAXIS
     Route: 065
  5. ACETYLSALICYLATE LISINE [Concomitant]
     Indication: CARDIOMYOPATHY
     Route: 048

REACTIONS (4)
  - Eyelid ptosis [Recovering/Resolving]
  - Diarrhoea [Recovering/Resolving]
  - Microcytic anaemia [Recovering/Resolving]
  - Asthenia [Recovering/Resolving]

NARRATIVE: CASE EVENT DATE: 20170622
